FAERS Safety Report 6015261-5 (Version None)
Quarter: 2008Q4

REPORT INFORMATION
  Report Type: 
  Country: None (occurrence: None)
  Receive Date: 20081219
  Receipt Date: 20081219
  Transmission Date: 20090506
  Serious: Yes (Other)
  Sender: FDA-Public Use
  Company Number: None

PATIENT
  Sex: Female
  Weight: 22.6799 kg

DRUGS (3)
  1. LUPRON DEPOT [Suspect]
     Indication: DELAYED PUBERTY
     Dosage: 7.5 MG Q MONTH IM
     Route: 030
     Dates: start: 20080404, end: 20081204
  2. DEPAKOTE [Concomitant]
  3. CLONAZEPAM [Concomitant]

REACTIONS (4)
  - IMPAIRED HEALING [None]
  - INJECTION SITE DISCHARGE [None]
  - INJECTION SITE ERYTHEMA [None]
  - INJECTION SITE SWELLING [None]
